FAERS Safety Report 15884560 (Version 1)
Quarter: 2019Q1

REPORT INFORMATION
  Report Type: Report from Study
  Country: AU (occurrence: AU)
  Receive Date: 20190129
  Receipt Date: 20190129
  Transmission Date: 20190417
  Serious: Yes (Death, Life-Threatening, Hospitalization, Other)
  Sender: FDA-Public Use
  Company Number: AU-MYLANLABS-2019M1007438

PATIENT
  Age: 51 Year
  Sex: Male

DRUGS (2)
  1. TENOFOVIR DISOPROXIL FUMARATE/EMTRICITABINE TABLETS 300/200MG [Suspect]
     Active Substance: EMTRICITABINE\TENOFOVIR DISOPROXIL FUMARATE
     Indication: PRODUCT USED FOR UNKNOWN INDICATION
     Dosage: 1 T OD, QD
     Route: 048
     Dates: start: 20170215
  2. AZATHIOPRINE. [Concomitant]
     Active Substance: AZATHIOPRINE
     Dosage: 100 MILLIGRAM, QD

REACTIONS (3)
  - Pulmonary haemorrhage [Fatal]
  - Haemophagocytic lymphohistiocytosis [Unknown]
  - Cytomegalovirus viraemia [Unknown]

NARRATIVE: CASE EVENT DATE: 2018
